FAERS Safety Report 9542203 (Version 3)
Quarter: 2013Q4

REPORT INFORMATION
  Report Type: Spontaneous
  Country: CN (occurrence: CN)
  Receive Date: 20130923
  Receipt Date: 20131017
  Transmission Date: 20140711
  Serious: Yes (Other)
  Sender: FDA-Public Use
  Company Number: CN-NAPPMUNDI-GBR-2013-0015747

PATIENT
  Age: 71 Year
  Sex: Male

DRUGS (9)
  1. MS CONTIN [Suspect]
     Indication: PAIN
     Dosage: 90 MG, BID
     Route: 048
     Dates: start: 20130902
  2. MS CONTIN [Suspect]
     Dosage: 180 MG, UNK
     Route: 048
     Dates: start: 20130901
  3. MS CONTIN [Suspect]
     Dosage: 10 MG, UNK
     Route: 048
     Dates: start: 20130831
  4. MS CONTIN [Suspect]
     Dosage: 10 MG, UNK
     Route: 048
     Dates: start: 20130831
  5. MORPHINE [Concomitant]
     Indication: PAIN
     Dosage: 40 MG, UNK
     Dates: start: 20130901
  6. MORPHINE [Concomitant]
     Dosage: 40 MG, UNK
     Dates: start: 20130831
  7. MORPHINE [Concomitant]
     Dosage: 40 MG, UNK
     Dates: start: 20130831
  8. MORPHINE [Concomitant]
     Dosage: 20 MG, UNK
     Dates: start: 20130831
  9. MORPHINE [Concomitant]
     Dosage: 10 MG, UNK
     Dates: start: 20130831

REACTIONS (5)
  - Drug dispensing error [Unknown]
  - Delirium [Unknown]
  - Dizziness [Unknown]
  - Nausea [Unknown]
  - Somnolence [Unknown]
